FAERS Safety Report 20927854 (Version 1)
Quarter: 2022Q2

REPORT INFORMATION
  Report Type: Spontaneous
  Country: US (occurrence: US)
  Receive Date: 20220607
  Receipt Date: 20220607
  Transmission Date: 20220720
  Serious: No
  Sender: FDA-Public Use
  Company Number: US-PERRIGO-21US032733

PATIENT
  Sex: Female
  Weight: 72.562 kg

DRUGS (2)
  1. MINOXIDIL [Suspect]
     Active Substance: MINOXIDIL
     Indication: Alopecia
     Dosage: APPROX. 1/2 CAPFUL, QD TO BID
     Route: 061
     Dates: start: 20211212, end: 20211215
  2. MINOXIDIL [Suspect]
     Active Substance: MINOXIDIL
     Dosage: APPROX. 1/2 CAPFUL, QD TO BID
     Route: 061

REACTIONS (1)
  - Inappropriate schedule of product administration [Recovered/Resolved]
